FAERS Safety Report 13227489 (Version 1)
Quarter: 2017Q1

REPORT INFORMATION
  Report Type: Spontaneous
  Country: IE (occurrence: IE)
  Receive Date: 20170213
  Receipt Date: 20170213
  Transmission Date: 20170428
  Serious: Yes (Other)
  Sender: FDA-Public Use
  Company Number: IE-TEVA-738405ACC

PATIENT
  Age: 70 Year
  Sex: Male

DRUGS (8)
  1. VENTOLIN (GENERIC) [Concomitant]
     Indication: ASTHMA
     Route: 055
     Dates: start: 20080401
  2. LIPITOR 10 MG CHEWABLE TABLETS [Concomitant]
     Indication: PROPHYLAXIS
     Dosage: 10 MILLIGRAM DAILY;
     Dates: start: 19960101, end: 20170113
  3. KLARAM LA [Suspect]
     Active Substance: CLARITHROMYCIN CITRATE
     Indication: LOWER RESPIRATORY TRACT INFECTION
     Dosage: 1000 MILLIGRAM DAILY;
     Route: 048
     Dates: start: 20170114, end: 20170119
  4. SYMBICORT [Concomitant]
     Active Substance: BUDESONIDE\FORMOTEROL FUMARATE DIHYDRATE
     Indication: ASTHMA
     Route: 055
     Dates: start: 19960101
  5. NUSEALS ASPIRIN (GENERIC) [Concomitant]
     Route: 048
     Dates: start: 19960101
  6. ADALAT RETARD 10 MG PROLONGED-RELEASE TABLETS. [Concomitant]
     Indication: HYPERTENSION
     Dosage: 10 MILLIGRAM DAILY;
     Dates: start: 19960101
  7. ZESTRIL [Concomitant]
     Active Substance: LISINOPRIL
     Indication: HYPERTENSION
     Route: 048
     Dates: start: 19960101
  8. AVAMYS [Concomitant]
     Active Substance: FLUTICASONE FUROATE
     Dates: end: 20170120

REACTIONS (4)
  - Troponin T increased [Not Recovered/Not Resolved]
  - Bundle branch block right [Unknown]
  - Chest pain [Not Recovered/Not Resolved]
  - Oedema peripheral [Not Recovered/Not Resolved]

NARRATIVE: CASE EVENT DATE: 20170118
